FAERS Safety Report 9051999 (Version 2)
Quarter: 2013Q2

REPORT INFORMATION
  Report Type: Spontaneous
  Country: FR (occurrence: FR)
  Receive Date: 20130207
  Receipt Date: 20130412
  Transmission Date: 20140414
  Serious: Yes (Other)
  Sender: FDA-Public Use
  Company Number: FR-009507513-1301FRA010687

PATIENT
  Age: 55 Year
  Sex: Female

DRUGS (3)
  1. COZAAR 50 MG, COMPRIM? PELLICUL? [Suspect]
     Indication: HYPERTENSION
     Dosage: 1 DF, QD
     Route: 048
     Dates: start: 2001
  2. ZALDIAR [Suspect]
     Indication: PAIN
     Dosage: 2 DF, ONCE
     Route: 048
     Dates: start: 20130122, end: 20130122
  3. LEXOMIL [Concomitant]
     Dosage: 1.5 DF, QD
     Route: 048

REACTIONS (5)
  - Loss of consciousness [Recovered/Resolved]
  - Syncope [Recovered/Resolved]
  - Malaise [Recovered/Resolved]
  - Hypotension [Recovering/Resolving]
  - Tooth abscess [Unknown]
